FAERS Safety Report 6811535-6 (Version None)
Quarter: 2010Q3

REPORT INFORMATION
  Report Type: 
  Country: None (occurrence: None)
  Receive Date: 20100701
  Receipt Date: 20100628
  Transmission Date: 20110219
  Serious: Yes (Hospitalization, Other)
  Sender: FDA-Public Use
  Company Number: US-ASTRAZENECA-2007UW03857

PATIENT
  Age: 38 Year
  Sex: Female
  Weight: 62.6 kg

DRUGS (59)
  1. SEROQUEL [Suspect]
     Indication: SLEEP DISORDER
     Dosage: 100-900 MG
     Route: 048
     Dates: start: 19970101, end: 20070101
  2. SEROQUEL [Suspect]
     Indication: BIPOLAR DISORDER
     Dosage: 100-900 MG
     Route: 048
     Dates: start: 19970101, end: 20070101
  3. SEROQUEL [Suspect]
     Indication: SCHIZOPHRENIA
     Dosage: 100-900 MG
     Route: 048
     Dates: start: 19970101, end: 20070101
  4. SEROQUEL [Suspect]
     Indication: DEPRESSION
     Dosage: 100-900 MG
     Route: 048
     Dates: start: 19970101, end: 20070101
  5. SEROQUEL [Suspect]
     Dosage: 100 MG TO 800 MG
     Route: 048
     Dates: start: 19990201, end: 20010719
  6. SEROQUEL [Suspect]
     Dosage: 100 MG TO 800 MG
     Route: 048
     Dates: start: 19990201, end: 20010719
  7. SEROQUEL [Suspect]
     Dosage: 100 MG TO 800 MG
     Route: 048
     Dates: start: 19990201, end: 20010719
  8. SEROQUEL [Suspect]
     Dosage: 100 MG TO 800 MG
     Route: 048
     Dates: start: 19990201, end: 20010719
  9. SEROQUEL [Suspect]
     Dosage: 200 MG TO 900 MG
     Route: 048
     Dates: start: 20010906, end: 20070507
  10. SEROQUEL [Suspect]
     Dosage: 200 MG TO 900 MG
     Route: 048
     Dates: start: 20010906, end: 20070507
  11. SEROQUEL [Suspect]
     Dosage: 200 MG TO 900 MG
     Route: 048
     Dates: start: 20010906, end: 20070507
  12. SEROQUEL [Suspect]
     Dosage: 200 MG TO 900 MG
     Route: 048
     Dates: start: 20010906, end: 20070507
  13. ZYPREXA [Concomitant]
     Indication: BIPOLAR DISORDER
     Dates: start: 19990101, end: 20000101
  14. RISPERDAL [Concomitant]
     Indication: BIPOLAR DISORDER
     Dates: start: 20030101
  15. TRAMADOL HYDROCHLORIDE AND ACETAMINOPHEN [Concomitant]
     Dosage: 37.5 MG/325 MG
     Route: 065
  16. SPIRONOLACTONE [Concomitant]
     Route: 065
  17. LYRICA [Concomitant]
     Route: 065
  18. CARISOPRODOL [Concomitant]
     Route: 065
  19. AMBIEN CR [Concomitant]
     Dosage: 10 MG - 20 MG
     Route: 048
  20. KLONOPIN [Concomitant]
     Route: 048
     Dates: start: 20070101
  21. ELAVIL [Concomitant]
     Route: 065
     Dates: start: 20070101
  22. SULFAMETHOXAZOLE AND TRIMETHOPRIM [Concomitant]
     Route: 065
  23. METHADOSE [Concomitant]
     Route: 065
  24. NAPROXEN SODIUM [Concomitant]
     Route: 065
  25. HYDROXYZINE HCL [Concomitant]
     Route: 065
  26. ESTRASORB TOPICAL EMULSION [Concomitant]
     Route: 065
  27. RESTORIL [Concomitant]
     Dosage: 15 MG - 30G AT NIGHT
     Route: 048
  28. LIDODERM [Concomitant]
     Route: 065
  29. TRILEPTAL [Concomitant]
     Route: 065
  30. MAXALT [Concomitant]
     Route: 065
  31. TOBRADEX OPTH OINT [Concomitant]
     Route: 065
  32. ZELNORM [Concomitant]
     Route: 065
  33. ABILIFY [Concomitant]
     Route: 065
     Dates: start: 20060101
  34. PREDNISONE [Concomitant]
     Route: 065
  35. FENTANYL [Concomitant]
     Route: 065
  36. CENESTIN [Concomitant]
     Route: 065
  37. PRECOSE [Concomitant]
     Route: 065
  38. PROMETHAZINE [Concomitant]
     Route: 065
  39. REMERON [Concomitant]
     Dosage: 30 MG - 60 MG
     Route: 048
  40. MIRALAX [Concomitant]
     Route: 065
  41. ALBUTEROL SULATE [Concomitant]
     Route: 065
  42. BECONASE [Concomitant]
     Route: 065
  43. VITAMIN B-12 [Concomitant]
     Route: 065
  44. LORTAB [Concomitant]
     Dosage: 7.5 MG/500 MG - 10 MG/500 MG
     Route: 065
  45. EFFEXOR XR [Concomitant]
     Dosage: 75 MG - 150 MG
     Route: 048
     Dates: start: 19990101, end: 20000101
  46. XANAX [Concomitant]
     Dosage: 0.5 MG - 1 MG
     Route: 048
  47. DIAZEPAM [Concomitant]
     Route: 048
  48. ATIVAN [Concomitant]
     Route: 048
  49. PAXIL [Concomitant]
     Route: 065
  50. NAPROSYN [Concomitant]
     Dosage: 375 THREE TIMES A DAY
     Route: 065
  51. GEODON [Concomitant]
     Route: 048
     Dates: start: 20040101
  52. DEPAKOTE [Concomitant]
     Dosage: 250 MG - 1500 MG
     Route: 048
  53. OXYCODONE HCL AND ACETAMINOPHEN [Concomitant]
     Dosage: 8-325 MG
     Route: 065
  54. MEPROZINE [Concomitant]
     Dosage: 50 MG/25 MG
     Route: 065
  55. CLOZARIL [Concomitant]
     Dates: start: 19930101
  56. HALDOL [Concomitant]
     Dates: start: 19930101
  57. NAVANE [Concomitant]
     Dates: start: 19930101
  58. STELAZINE [Concomitant]
     Dates: start: 19930101
  59. THORAZINE [Concomitant]
     Dates: start: 19930101

REACTIONS (5)
  - GASTROENTERITIS [None]
  - PANIC DISORDER [None]
  - SCHIZOAFFECTIVE DISORDER [None]
  - SUICIDE ATTEMPT [None]
  - TYPE 2 DIABETES MELLITUS [None]
